FAERS Safety Report 24206105 (Version 1)
Quarter: 2024Q3

REPORT INFORMATION
  Report Type: Spontaneous
  Country: IT (occurrence: IT)
  Receive Date: 20240813
  Receipt Date: 20240813
  Transmission Date: 20241017
  Serious: Yes (Death)
  Sender: ASCEND
  Company Number: IT-Ascend Therapeutics US, LLC-2160359

PATIENT
  Age: 26 Year
  Sex: Male

DRUGS (8)
  1. ANDROGEL [Suspect]
     Active Substance: TESTOSTERONE
     Indication: Product used for unknown indication
     Route: 065
  2. TESTOSTERONE [Suspect]
     Active Substance: TESTOSTERONE
     Route: 065
  3. METHANDROSTENOLONE [Suspect]
     Active Substance: METHANDROSTENOLONE
     Route: 065
  4. STANOZOLOL [Suspect]
     Active Substance: STANOZOLOL
     Route: 065
  5. ANDROSTANOLONE [Suspect]
     Active Substance: ANDROSTANOLONE
     Route: 065
  6. ANDROSTENEDIONE [Suspect]
     Active Substance: ANDROSTENEDIONE
     Route: 065
  7. TAMOXIFEN [Suspect]
     Active Substance: TAMOXIFEN
     Route: 048
  8. TRENBOLONE [Suspect]
     Active Substance: TRENBOLONE
     Route: 065

REACTIONS (5)
  - Cardiomegaly [Fatal]
  - Drug abuse [Fatal]
  - Left ventricular hypertrophy [Fatal]
  - Arrhythmia [Fatal]
  - Cardiopulmonary failure [Fatal]
